FAERS Safety Report 4429462-0 (Version None)
Quarter: 2004Q3

REPORT INFORMATION
  Report Type: 
  Country: None (occurrence: None)
  Receive Date: 20040816
  Receipt Date: 20040730
  Transmission Date: 20050211
  Serious: Yes (Hospitalization)
  Sender: FDA-Public Use
  Company Number: 04P-028-0268839-00

PATIENT
  Age: 65 Year
  Sex: Female
  Weight: 120 kg

DRUGS (13)
  1. MAVIK [Suspect]
     Indication: HYPERTENSION
     Dosage: 1 MG, 1 IN 1 D, PER ORAL
     Route: 048
     Dates: start: 20040710, end: 20040716
  2. ATORVASTATIN [Concomitant]
  3. DILTIAZEM HYDROCHLORIDE [Concomitant]
  4. THEOPHYLLINE [Concomitant]
  5. METFORMIN HCL [Concomitant]
  6. GLIBENCLAMIDE [Concomitant]
  7. HYZAAR [Concomitant]
  8. FUROSEMIDE [Concomitant]
  9. OMEPRAZOLE [Concomitant]
  10. ROFECOXIB [Concomitant]
  11. FLUTICASONE PROPIONATE [Concomitant]
  12. COMBIVENT [Concomitant]
  13. ALBUTEROL SULFATE [Concomitant]

REACTIONS (3)
  - ANGIONEUROTIC OEDEMA [None]
  - PNEUMONIA [None]
  - SEPSIS [None]
